FAERS Safety Report 7830208-4 (Version None)
Quarter: 2011Q4

REPORT INFORMATION
  Report Type: 
  Country: None (occurrence: None)
  Receive Date: 20111021
  Receipt Date: 20111013
  Transmission Date: 20120403
  Serious: Yes (Hospitalization)
  Sender: FDA-Public Use
  Company Number: PHHY2011FR90742

PATIENT
  Sex: Male

DRUGS (9)
  1. RASILEZ [Suspect]
     Dosage: 300 MG, QD
     Route: 048
     Dates: start: 20100401, end: 20110816
  2. RASILEZ [Suspect]
     Dosage: 300 MG, QD
     Route: 048
     Dates: start: 20110823, end: 20110905
  3. ASPIRIN [Concomitant]
     Dosage: 75 MG, UNK
     Route: 048
  4. TADENAN [Suspect]
     Dosage: 1 DF, BID
     Route: 048
     Dates: end: 20110905
  5. FENOFIBRATE [Concomitant]
     Dosage: 200 MG, UNK
     Route: 048
  6. VALSARTAN  AND HYDROCHLOROTHIAZIDE [Suspect]
     Dosage: 160 MG VALS/25 MG HCT
     Route: 048
     Dates: end: 20110905
  7. NEBIVOLOL HCL [Suspect]
     Dosage: 5 MG, QD
     Route: 048
     Dates: end: 20110816
  8. ALLOPURINOL [Concomitant]
     Dosage: 200 MG, UNK
     Route: 048
  9. FENOFIBRATE [Concomitant]
     Dosage: 200 MG, UNK
     Route: 048
     Dates: end: 20110905

REACTIONS (6)
  - VOMITING [None]
  - RENAL FAILURE ACUTE [None]
  - RECTAL HAEMORRHAGE [None]
  - DEHYDRATION [None]
  - DIARRHOEA [None]
  - ABDOMINAL PAIN [None]
